FAERS Safety Report 10061512 (Version 3)
Quarter: 2014Q2

REPORT INFORMATION
  Report Type: Spontaneous
  Country: FI (occurrence: FI)
  Receive Date: 20140407
  Receipt Date: 20140501
  Transmission Date: 20141212
  Serious: Yes (Life-Threatening, Other)
  Sender: FDA-Public Use
  Company Number: FI-ELI_LILLY_AND_COMPANY-FI201404000832

PATIENT
  Age: 72 Year
  Sex: Female

DRUGS (5)
  1. ZYPADHERA [Suspect]
     Indication: SCHIZOPHRENIA
     Dosage: 210 MG, UNKNOWN
     Route: 030
     Dates: start: 20140115
  2. ZYPADHERA [Suspect]
     Dosage: 300 MG, UNKNOWN
     Route: 030
     Dates: start: 20140129
  3. ZYPADHERA [Suspect]
     Dosage: 405 MG, UNKNOWN
     Route: 030
     Dates: start: 20140212, end: 20140326
  4. ABILIFY [Concomitant]
     Dosage: 7.5 MG, UNK
     Route: 048
     Dates: start: 201403
  5. ESTROGEL [Concomitant]
     Dosage: 6.0 MG, UNKNOWN
     Route: 061

REACTIONS (13)
  - Dyspnoea [Recovered/Resolved]
  - Muscle spasms [Recovered/Resolved]
  - Fall [Recovered/Resolved]
  - Flushing [Recovered/Resolved]
  - Extensor plantar response [Unknown]
  - Loss of consciousness [Recovered/Resolved]
  - Extrapyramidal disorder [Recovered/Resolved]
  - Hypertension [Recovered/Resolved]
  - Musculoskeletal stiffness [Recovered/Resolved]
  - Restlessness [Recovered/Resolved]
  - Pneumonia [Unknown]
  - Pyrexia [Unknown]
  - Drug ineffective [Unknown]
